FAERS Safety Report 18937058 (Version 1)
Quarter: 2021Q1

REPORT INFORMATION
  Report Type: Report from Study
  Country: US (occurrence: US)
  Receive Date: 20210224
  Receipt Date: 20210224
  Transmission Date: 20210420
  Serious: Yes (Hospitalization)
  Sender: FDA-Public Use
  Company Number: US-B.I. PHARMACEUTICALS,INC./RIDGEFIELD-2020-BI-049257

PATIENT
  Age: 83 Year
  Sex: Male

DRUGS (2)
  1. OFEV [Suspect]
     Active Substance: NINTEDANIB
     Indication: IDIOPATHIC PULMONARY FIBROSIS
     Route: 048
     Dates: start: 20200801, end: 20210208
  2. OFEV [Suspect]
     Active Substance: NINTEDANIB
     Indication: HYPOXIA
     Route: 048

REACTIONS (11)
  - Diverticulitis intestinal haemorrhagic [Recovering/Resolving]
  - Increased tendency to bruise [Unknown]
  - Dyspnoea [Unknown]
  - Constipation [Unknown]
  - Nausea [Recovered/Resolved]
  - Decreased appetite [Unknown]
  - Weight decreased [Unknown]
  - Feeling cold [Unknown]
  - Dry mouth [Unknown]
  - Loss of personal independence in daily activities [Unknown]
  - Nausea [Recovering/Resolving]

NARRATIVE: CASE EVENT DATE: 20200801
